FAERS Safety Report 8132327-4 (Version None)
Quarter: 2012Q1

REPORT INFORMATION
  Report Type: 
  Country: None (occurrence: None)
  Receive Date: 20120213
  Receipt Date: 20120206
  Transmission Date: 20120608
  Serious: Yes (Hospitalization)
  Sender: FDA-Public Use
  Company Number: US-BAYER-2011-052289

PATIENT
  Age: 17 Year
  Sex: Female
  Weight: 150.57 kg

DRUGS (14)
  1. METFORMIN HCL [Concomitant]
     Dosage: 1000 MG, BID
     Dates: start: 20090801
  2. PSEUDOEPHEDRINE HCL [Concomitant]
  3. YASMIN [Suspect]
     Indication: CONTRACEPTION
     Dosage: UNK
     Dates: start: 20080201, end: 20080801
  4. DROSPIRENONE AND ETHINYL ESTRADIOL [Suspect]
     Indication: CONTRACEPTION
     Dosage: UNK
     Dates: start: 20080901, end: 20090824
  5. METFORMIN HCL [Concomitant]
     Dosage: 1000 MG, BID
     Dates: end: 20090601
  6. NASAL [Concomitant]
  7. CIPROFLOXACIN HCL [Concomitant]
  8. LEVEMIR [Concomitant]
     Indication: DIABETES MELLITUS
     Dosage: 100 U/ML, UNK
     Dates: start: 20050101
  9. ACTOS [Concomitant]
     Indication: DIABETES MELLITUS
     Dosage: UNK
     Dates: start: 20050101
  10. METFORMIN HCL [Concomitant]
     Indication: DIABETES MELLITUS
     Dosage: UNK
     Dates: start: 20050101, end: 20110101
  11. ACTOS [Concomitant]
     Dosage: UNK
     Dates: start: 20090801
  12. GLIMEPIRIDE [Concomitant]
     Indication: DIABETES MELLITUS
     Dosage: 4 MG, UNK
     Dates: start: 20050101
  13. AZITHROMYCIN [Concomitant]
  14. ZITHROMAX [Concomitant]
     Indication: PNEUMONIA
     Dosage: 2 DF, UNK
     Dates: start: 20090623, end: 20090623

REACTIONS (5)
  - CHEST PAIN [None]
  - INJURY [None]
  - PULMONARY EMBOLISM [None]
  - MUSCLE SPASMS [None]
  - EMOTIONAL DISTRESS [None]
